FAERS Safety Report 19577895 (Version 1)
Quarter: 2021Q3

REPORT INFORMATION
  Report Type: Spontaneous
  Country: CA (occurrence: CA)
  Receive Date: 20210719
  Receipt Date: 20210719
  Transmission Date: 20211014
  Serious: Yes (Other)
  Sender: FDA-Public Use
  Company Number: CA-SAMSUNG BIOEPIS-SB-2021-17187

PATIENT
  Age: 25 Year
  Sex: Male
  Weight: 195 kg

DRUGS (1)
  1. INFLIXIMAB [Suspect]
     Active Substance: INFLIXIMAB
     Indication: RHEUMATOID ARTHRITIS
     Route: 042

REACTIONS (12)
  - Cough [Unknown]
  - Dyspnoea [Unknown]
  - Paralysis [Unknown]
  - Psoriasis [Unknown]
  - Drug hypersensitivity [Unknown]
  - Hot flush [Unknown]
  - Musculoskeletal stiffness [Unknown]
  - Rash [Unknown]
  - Bone pain [Unknown]
  - Erythema [Unknown]
  - Influenza like illness [Unknown]
  - Pain [Unknown]
